FAERS Safety Report 7397934-5 (Version None)
Quarter: 2011Q2

REPORT INFORMATION
  Report Type: 
  Country: None (occurrence: None)
  Receive Date: 20110406
  Receipt Date: 20110321
  Transmission Date: 20111010
  Serious: Yes (Hospitalization)
  Sender: FDA-Public Use
  Company Number: US-BAYER-2011-027734

PATIENT
  Sex: Female
  Weight: 102.4 kg

DRUGS (4)
  1. PLAVIX [Concomitant]
     Dosage: UNK
     Dates: start: 20060101, end: 20100101
  2. SIMVASTATIN [Concomitant]
     Dosage: UNK
     Dates: start: 20060101, end: 20100101
  3. DIOVAN [Concomitant]
     Dosage: UNK
     Dates: start: 20060101, end: 20100101
  4. YAZ [Suspect]
     Indication: OVARIAN CYST
     Dosage: UNK
     Dates: start: 20060101, end: 20060601

REACTIONS (2)
  - MYOCARDIAL INFARCTION [None]
  - ARTERIAL THROMBOSIS [None]
